FAERS Safety Report 9477397 (Version 2)
Quarter: 2013Q4

REPORT INFORMATION
  Report Type: Spontaneous
  Country: NO (occurrence: NO)
  Receive Date: 20130826
  Receipt Date: 20131018
  Transmission Date: 20140711
  Serious: Yes (Other)
  Sender: FDA-Public Use
  Company Number: CHNY2013NO001784

PATIENT
  Sex: Male

DRUGS (1)
  1. OTRIVIN [Suspect]
     Dosage: AT LEAST 2 BOTTLES, QMO

REACTIONS (1)
  - Drug dependence [Not Recovered/Not Resolved]
